FAERS Safety Report 5803305-2 (Version None)
Quarter: 2008Q3

REPORT INFORMATION
  Report Type: 
  Country: None (occurrence: None)
  Receive Date: 20080708
  Receipt Date: 20080626
  Transmission Date: 20090109
  Serious: Yes (Death, Hospitalization)
  Sender: FDA-Public Use
  Company Number: B0527111A

PATIENT
  Age: 83 Year
  Sex: Female

DRUGS (10)
  1. ARIXTRA [Suspect]
     Indication: THROMBOSIS
     Dosage: 7.5MG PER DAY
     Route: 058
     Dates: start: 20080510, end: 20080520
  2. PLAVIX [Suspect]
     Indication: DRUG USE FOR UNKNOWN INDICATION
     Dosage: 75MG PER DAY
     Route: 048
  3. PYOSTACINE [Concomitant]
     Route: 048
     Dates: start: 20080510, end: 20080520
  4. MONICOR [Concomitant]
     Dosage: 40MG PER DAY
     Route: 048
  5. ZOCOR [Concomitant]
     Dosage: 20MG PER DAY
     Route: 048
  6. ACETAMINOPHEN [Concomitant]
     Dosage: 530MG SIX TIMES PER DAY
     Route: 048
  7. LORAZEPAM [Concomitant]
     Dosage: 1TAB PER DAY
     Route: 048
  8. ZALDIAR [Concomitant]
     Dosage: 1TAB PER DAY
     Route: 048
  9. DITROPAN [Concomitant]
     Dosage: 5MG PER DAY
     Route: 048
  10. TENORMIN [Concomitant]
     Dosage: 50MG PER DAY
     Route: 048

REACTIONS (9)
  - CEREBELLAR HAEMATOMA [None]
  - CEREBROVASCULAR ACCIDENT [None]
  - COMA [None]
  - DEPRESSED LEVEL OF CONSCIOUSNESS [None]
  - GLASGOW COMA SCALE ABNORMAL [None]
  - HAEMORRHAGE INTRACRANIAL [None]
  - LOSS OF CONSCIOUSNESS [None]
  - MIOSIS [None]
  - RENAL FAILURE [None]
